FAERS Safety Report 9656293 (Version 2)
Quarter: 2014Q1

REPORT INFORMATION
  Report Type: Spontaneous
  Country: US (occurrence: US)
  Receive Date: 20131030
  Receipt Date: 20140317
  Transmission Date: 20141002
  Serious: Yes (Death)
  Sender: FDA-Public Use
  Company Number: US-PFIZER INC-2013308883

PATIENT
  Age: 71 Year
  Sex: Female

DRUGS (29)
  1. INLYTA [Suspect]
     Indication: RENAL CELL CARCINOMA
     Dosage: UNK
     Route: 048
     Dates: start: 20131009
  2. INLYTA [Suspect]
     Dosage: 1 MG, 2X/DAY
     Dates: start: 20131018
  3. INLYTA [Suspect]
     Dosage: 1 MG, 2X/DAY (FOR 7 DAYS)
     Route: 048
     Dates: start: 20131022
  4. INLYTA [Suspect]
     Dosage: 2 MG, 2X/DAY
     Route: 048
     Dates: end: 20131025
  5. DEXAMETHASONE [Concomitant]
     Dosage: UNK
     Dates: start: 20130531
  6. ACETAMINOPHEN W/HYDROCODONE BITARTRATE [Concomitant]
     Dosage: UNK
     Dates: start: 20130213
  7. MAGNESIUM OXIDE [Concomitant]
     Dosage: UNK
     Dates: start: 20130531
  8. MORPHINE SULFATE [Concomitant]
     Dosage: UNK, SOLUTION
     Dates: start: 20130411
  9. OMEPRAZOLE [Concomitant]
     Dosage: UNK, CAPSULE DELAYED RELEASE
     Dates: start: 20131009
  10. RED BLOOD CELLS, CONCENTRATED [Concomitant]
     Dosage: UNK
     Dates: start: 20130114, end: 20131223
  11. ROXANOL [Concomitant]
     Dosage: UNK, SOLUTION
     Dates: start: 20130806
  12. SODIUM BICARBONATE [Concomitant]
     Dosage: UNK
     Dates: start: 20130528
  13. COREG CR [Concomitant]
     Dosage: 25 MG, 2X/DAY  CAPSULE, CONTROLLED RELEASE
     Route: 048
  14. DEXILANT [Concomitant]
     Dosage: 60 MG, DAILY CAPSULE DELAYED RELEASE
     Route: 048
  15. FERREX 150 FORTE [Concomitant]
     Dosage: UNK, DAILY
     Route: 048
  16. FUROSEMIDE [Concomitant]
     Dosage: 20 MG, DAILY
     Route: 048
  17. INSULIN GLARGINE [Concomitant]
     Dosage: 100 IU/ML, UNK SOLUTION TAKE AS DIRECTED
     Route: 058
  18. LIPITOR [Concomitant]
     Dosage: 10 MG, DAILY
     Route: 048
  19. NOVOLIN [Concomitant]
     Dosage: UNK, 3X/DAY 70130 SUSPENSION
     Route: 058
  20. OXYCONTIN [Concomitant]
     Dosage: 10 MG, 2X/DAY TABLET SR 12 HOURS
     Route: 048
  21. OXYCONTIN [Concomitant]
     Dosage: 40 MG, 2X/DAY (EVERY 12 HOURS)
     Route: 048
     Dates: start: 20130909, end: 20131030
  22. PLAVIX [Concomitant]
     Dosage: 75 MG, DAILY
     Route: 048
  23. RANITIDINE HYDROCHLORIDE [Concomitant]
     Dosage: 150 MG, DAILY
     Route: 048
  24. ACYCLOVIR [Concomitant]
     Dosage: 400 MG, 2X/DAY
     Route: 048
     Dates: start: 20131217, end: 20131224
  25. BMX MOUTHWASH [Concomitant]
     Dosage: 2 DF, 4X/DAY SOLUTION
     Route: 048
     Dates: start: 20130826, end: 20131224
  26. DIFLUCAN [Concomitant]
     Dosage: 200 MG, DAILY
     Route: 048
     Dates: start: 20131210, end: 20131217
  27. DURAGESIC [Concomitant]
     Dosage: 25 UG, EVERY 72 HOURS PATCH
     Route: 062
     Dates: start: 20130930, end: 20131030
  28. MEGACE ES [Concomitant]
     Dosage: 625 MG, DAILY SUSPENSION
     Route: 048
     Dates: start: 20130724, end: 20131022
  29. MS CONTIN [Concomitant]
     Dosage: 30 MG, 2X/DAY (EVERY 12 HOURS)
     Route: 048
     Dates: start: 20131112, end: 20140130

REACTIONS (2)
  - Death [Fatal]
  - Abdominal pain [Recovered/Resolved]
